FAERS Safety Report 4801092-8 (Version None)
Quarter: 2005Q4

REPORT INFORMATION
  Report Type: 
  Country: None (occurrence: None)
  Receive Date: 20051017
  Receipt Date: 20050926
  Transmission Date: 20060501
  Serious: Yes (Hospitalization)
  Sender: FDA-Public Use
  Company Number: GB-BRISTOL-MYERS SQUIBB COMPANY-13121074

PATIENT
  Age: 55 Year
  Sex: Male

DRUGS (10)
  1. METFORMIN HCL [Suspect]
  2. ASPIRIN [Suspect]
  3. BENDROFLUMETHIAZIDE [Suspect]
  4. ISOSORBIDE MONONITRATE [Suspect]
  5. ATORVASTATIN [Suspect]
  6. RAMIPRIL [Suspect]
  7. AMLODIPINE [Suspect]
     Dosage: DOSAGE FORM = 5-10 MG
  8. PIOGLITAZONE HCL [Suspect]
  9. METHYLDOPA [Suspect]
  10. HYDRALAZINE HCL [Suspect]

REACTIONS (10)
  - ATRIAL FIBRILLATION [None]
  - CEREBRAL HAEMATOMA [None]
  - DYSARTHRIA [None]
  - GLUCOSE URINE PRESENT [None]
  - HEMIANOPIA HOMONYMOUS [None]
  - HYPERTENSION [None]
  - ISCHAEMIC STROKE [None]
  - PROTEINURIA [None]
  - SOMNOLENCE [None]
  - VENTRICULAR HYPERTROPHY [None]
